FAERS Safety Report 5102839-6 (Version None)
Quarter: 2006Q4

REPORT INFORMATION
  Report Type: 
  Country: None (occurrence: None)
  Receive Date: 20060907
  Receipt Date: 20060821
  Transmission Date: 20070319
  Serious: Yes (Other)
  Sender: FDA-Public Use
  Company Number: GB200608004415

PATIENT
  Age: 9 Year
  Sex: Male
  Weight: 44 kg

DRUGS (1)
  1. STRATTERA [Suspect]
     Indication: ATTENTION DEFICIT/HYPERACTIVITY DISORDER
     Dosage: 40 MG, DAILY (1/D), ORAL
     Route: 048
     Dates: start: 20040901, end: 20060125

REACTIONS (3)
  - ABDOMINAL PAIN UPPER [None]
  - PALLOR [None]
  - SELF INJURIOUS BEHAVIOUR [None]
